FAERS Safety Report 8442132-7 (Version None)
Quarter: 2012Q2

REPORT INFORMATION
  Report Type: 
  Country: None (occurrence: None)
  Receive Date: 20120615
  Receipt Date: 20120612
  Transmission Date: 20120825
  Serious: Yes (Death, Other)
  Sender: FDA-Public Use
  Company Number: VE-PFIZER INC-2012119125

PATIENT
  Age: 81 Year
  Sex: Male

DRUGS (2)
  1. CORASPIN [Concomitant]
     Dosage: 81 MG, 1X/DAY
     Route: 048
     Dates: end: 20120410
  2. ZOLOFT [Suspect]
     Indication: VASCULAR DEMENTIA
     Dosage: UNK, 1X/DAY
     Route: 048
     Dates: start: 20070101, end: 20120410

REACTIONS (4)
  - GASTRODUODENAL ULCER [None]
  - OVERDOSE [None]
  - RESPIRATORY ARREST [None]
  - CEREBROVASCULAR ACCIDENT [None]
